FAERS Safety Report 14635521 (Version 3)
Quarter: 2018Q2

REPORT INFORMATION
  Report Type: Report from Study
  Country: CA (occurrence: CA)
  Receive Date: 20180314
  Receipt Date: 20180607
  Transmission Date: 20180711
  Serious: Yes (Hospitalization, Other)
  Sender: FDA-Public Use
  Company Number: PHHY2015CA148779

PATIENT
  Sex: Male

DRUGS (9)
  1. APO ATORVASTATIN [Concomitant]
     Active Substance: ATORVASTATIN CALCIUM
     Indication: PRODUCT USED FOR UNKNOWN INDICATION
     Dosage: UNK
     Route: 065
  2. GLEEVEC [Suspect]
     Active Substance: IMATINIB MESYLATE
     Dosage: 200 MG, QD
     Route: 048
     Dates: end: 20180227
  3. SYNTHROID [Concomitant]
     Active Substance: LEVOTHYROXINE SODIUM
     Indication: PRODUCT USED FOR UNKNOWN INDICATION
     Dosage: UNK
     Route: 065
  4. APO RAMIPRIL [Concomitant]
     Active Substance: RAMIPRIL
     Indication: PRODUCT USED FOR UNKNOWN INDICATION
     Dosage: UNK
     Route: 065
  5. GLEEVEC [Suspect]
     Active Substance: IMATINIB MESYLATE
     Indication: GASTROINTESTINAL STROMAL TUMOUR
     Dosage: 300 MG, QD
     Route: 048
     Dates: start: 20151012
  6. GLEEVEC [Suspect]
     Active Substance: IMATINIB MESYLATE
     Dosage: 300 MG, QD
     Route: 048
     Dates: start: 201708
  7. GLEEVEC [Suspect]
     Active Substance: IMATINIB MESYLATE
     Dosage: 1 DF, QD
     Route: 048
  8. GLEEVEC [Suspect]
     Active Substance: IMATINIB MESYLATE
     Dosage: 400 MG, QD
     Route: 048
  9. CITALOPRAM [Concomitant]
     Active Substance: CITALOPRAM HYDROBROMIDE
     Indication: PRODUCT USED FOR UNKNOWN INDICATION
     Dosage: UNK
     Route: 065

REACTIONS (50)
  - Balance disorder [Unknown]
  - Blood pressure abnormal [Unknown]
  - Glaucoma [Unknown]
  - Gastrointestinal stromal tumour [Recovering/Resolving]
  - Increased upper airway secretion [Unknown]
  - Increased viscosity of bronchial secretion [Unknown]
  - Testicular swelling [Unknown]
  - Scrotal swelling [Unknown]
  - Malaise [Recovered/Resolved]
  - Haemoglobin decreased [Unknown]
  - Sinus disorder [Recovering/Resolving]
  - Urine abnormality [Unknown]
  - Joint swelling [Recovered/Resolved]
  - Diarrhoea [Unknown]
  - Eczema [Recovering/Resolving]
  - Influenza [Recovered/Resolved]
  - Tumour haemorrhage [Unknown]
  - Discomfort [Unknown]
  - Abdominal distension [Unknown]
  - Eye swelling [Unknown]
  - Ageusia [Unknown]
  - Urticaria [Unknown]
  - Renal impairment [Unknown]
  - Gastroenteritis viral [Unknown]
  - Weight increased [Unknown]
  - Eye haemorrhage [Unknown]
  - Wheezing [Unknown]
  - Asthenia [Unknown]
  - Nodule [Unknown]
  - Fatigue [Unknown]
  - Dyspnoea [Not Recovered/Not Resolved]
  - Depressed mood [Unknown]
  - Dizziness [Unknown]
  - Cough [Unknown]
  - Pleural effusion [Unknown]
  - Weight decreased [Unknown]
  - Muscular weakness [Unknown]
  - Choking [Unknown]
  - Bladder disorder [Unknown]
  - Sputum discoloured [Unknown]
  - Oedema peripheral [Recovered/Resolved]
  - Pneumonia [Recovered/Resolved]
  - Malignant neoplasm progression [Recovering/Resolving]
  - Dysphonia [Unknown]
  - Eating disorder [Unknown]
  - Blood iron decreased [Unknown]
  - Haemoptysis [Unknown]
  - Fluid retention [Recovering/Resolving]
  - Ocular hyperaemia [Unknown]
  - Pyrexia [Unknown]
